FAERS Safety Report 15956002 (Version 1)
Quarter: 2019Q1

REPORT INFORMATION
  Report Type: Spontaneous
  Country: US (occurrence: US)
  Receive Date: 20190213
  Receipt Date: 20190213
  Transmission Date: 20190417
  Serious: No
  Sender: FDA-Public Use
  Company Number: US-MYLANLABS-2019M1008438

PATIENT

DRUGS (3)
  1. FLUVOXAMINE MALEATE TABLETS, USP [Suspect]
     Active Substance: FLUVOXAMINE MALEATE
     Indication: OBSESSIVE-COMPULSIVE DISORDER
  2. FLUVOXAMINE MALEATE TABLETS, USP [Suspect]
     Active Substance: FLUVOXAMINE MALEATE
     Indication: ANXIETY
     Dosage: 300 MILLIGRAM, QD
     Route: 048
  3. FLUVOXAMINE MALEATE TABLETS, USP [Suspect]
     Active Substance: FLUVOXAMINE MALEATE
     Indication: DEPRESSION

REACTIONS (7)
  - Stress [Not Recovered/Not Resolved]
  - Panic attack [Not Recovered/Not Resolved]
  - Adverse event [Unknown]
  - Anxiety [Not Recovered/Not Resolved]
  - Malaise [Not Recovered/Not Resolved]
  - Product use in unapproved indication [Not Recovered/Not Resolved]
  - Depression [Not Recovered/Not Resolved]
